FAERS Safety Report 12640723 (Version 1)
Quarter: 2016Q3

REPORT INFORMATION
  Report Type: Spontaneous
  Country: US (occurrence: US)
  Receive Date: 20160810
  Receipt Date: 20160810
  Transmission Date: 20161109
  Serious: No
  Sender: FDA-Public Use
  Company Number: US-BEH-2016072086

PATIENT
  Age: 59 Year
  Sex: Female
  Weight: 103.86 kg

DRUGS (32)
  1. HIZENTRA [Suspect]
     Active Substance: HUMAN IMMUNOGLOBULIN G
     Indication: IMMUNODEFICIENCY COMMON VARIABLE
     Dosage: 10 G, QW
     Route: 058
     Dates: start: 20130422
  2. PROMETHAZINE [Concomitant]
     Active Substance: PROMETHAZINE\PROMETHAZINE HYDROCHLORIDE
  3. ZYRTEC-D [Concomitant]
     Active Substance: CETIRIZINE HYDROCHLORIDE\PSEUDOEPHEDRINE HYDROCHLORIDE
  4. MOBIC [Concomitant]
     Active Substance: MELOXICAM
  5. STOOL SOFTENER [Concomitant]
     Active Substance: DOCUSATE CALCIUM
  6. NEURONTIN [Concomitant]
     Active Substance: GABAPENTIN
  7. LOTREL [Concomitant]
     Active Substance: AMLODIPINE BESYLATE\BENAZEPRIL HYDROCHLORIDE
  8. PREDNISONE. [Concomitant]
     Active Substance: PREDNISONE
  9. DYMISTA [Concomitant]
     Active Substance: AZELASTINE HYDROCHLORIDE\FLUTICASONE PROPIONATE
  10. TEKTURNA [Concomitant]
     Active Substance: ALISKIREN HEMIFUMARATE
  11. ESTRACE [Concomitant]
     Active Substance: ESTRADIOL
  12. DAILY MULTIVITAMIN [Concomitant]
     Active Substance: VITAMINS
  13. PRAVASTATIN. [Concomitant]
     Active Substance: PRAVASTATIN
  14. SINGULAIR [Concomitant]
     Active Substance: MONTELUKAST SODIUM
  15. ALLEGRA [Concomitant]
     Active Substance: FEXOFENADINE HYDROCHLORIDE
  16. HYDROCHLOROTHIAZIDE. [Concomitant]
     Active Substance: HYDROCHLOROTHIAZIDE
  17. POTASSIUM GLUCONATE [Concomitant]
     Active Substance: POTASSIUM GLUCONATE
  18. ACETAMINOPHEN. [Concomitant]
     Active Substance: ACETAMINOPHEN
  19. EPIPEN [Concomitant]
     Active Substance: EPINEPHRINE
  20. CRANBERRY                          /01512301/ [Concomitant]
     Active Substance: CRANBERRY
  21. HYDROCODONE BITARTRATE AND ACETAMINOPHEN [Concomitant]
     Active Substance: ACETAMINOPHEN\HYDROCODONE BITARTRATE
  22. DULERA [Concomitant]
     Active Substance: FORMOTEROL FUMARATE DIHYDRATE\MOMETASONE FUROATE
  23. DIAZEPAM. [Concomitant]
     Active Substance: DIAZEPAM
  24. VENTOLIN [Concomitant]
     Active Substance: ALBUTEROL SULFATE
  25. VITAMIN E                          /00110501/ [Concomitant]
     Active Substance: TOCOPHEROL
  26. DIPHENHYDRAMINE. [Concomitant]
     Active Substance: DIPHENHYDRAMINE
  27. PENICILLIN                         /00000901/ [Concomitant]
     Active Substance: PENICILLIN G
  28. CORTISONE [Concomitant]
     Active Substance: CORTISONE\HYDROCORTISONE
  29. AMOXICILLIN. [Concomitant]
     Active Substance: AMOXICILLIN
  30. COENZYME Q10 [Concomitant]
     Active Substance: UBIDECARENONE
  31. NEXIUM [Concomitant]
     Active Substance: ESOMEPRAZOLE MAGNESIUM
  32. XOPENEX [Concomitant]
     Active Substance: LEVALBUTEROL HYDROCHLORIDE

REACTIONS (1)
  - Sinusitis [Unknown]

NARRATIVE: CASE EVENT DATE: 20160404
